FAERS Safety Report 4883101-3 (Version None)
Quarter: 2006Q1

REPORT INFORMATION
  Report Type: 
  Country: None (occurrence: None)
  Receive Date: 20060118
  Receipt Date: 20060109
  Transmission Date: 20060701
  Serious: Yes (Hospitalization)
  Sender: FDA-Public Use
  Company Number: BR-JNJFOC-20060102919

PATIENT
  Age: 22 Year
  Sex: Female
  Weight: 60 kg

DRUGS (1)
  1. HALDOL [Suspect]
     Indication: DRUG USE FOR UNKNOWN INDICATION
     Dosage: PATIENT INGESTED SEVEN 5 MG TABLETS.
     Route: 048
     Dates: start: 20060108, end: 20060108

REACTIONS (2)
  - CONVULSION [None]
  - SUICIDE ATTEMPT [None]
